FAERS Safety Report 7349693-X (Version None)
Quarter: 2011Q1

REPORT INFORMATION
  Report Type: 
  Country: None (occurrence: None)
  Receive Date: 20110309
  Receipt Date: 20110309
  Transmission Date: 20110831
  Serious: Yes (Death)
  Sender: FDA-Public Use
  Company Number: None

PATIENT
  Age: 78 Year

DRUGS (1)
  1. FORTEO [Suspect]
     Dates: start: 20110225

REACTIONS (4)
  - PARALYSIS [None]
  - EYE MOVEMENT DISORDER [None]
  - CEREBRAL DISORDER [None]
  - CHEST PAIN [None]
